FAERS Safety Report 7392419-4 (Version None)
Quarter: 2011Q2

REPORT INFORMATION
  Report Type: 
  Country: None (occurrence: None)
  Receive Date: 20110404
  Receipt Date: 20110322
  Transmission Date: 20111010
  Serious: Yes (Other)
  Sender: FDA-Public Use
  Company Number: US-CELGENEUS-163-20785-11032646

PATIENT
  Age: 74 Year
  Sex: Male
  Weight: 99 kg

DRUGS (7)
  1. ASPIRIN [Concomitant]
     Dosage: 325 MILLIGRAM
     Route: 048
  2. THALOMID [Suspect]
     Dosage: 100 MILLIGRAM
     Route: 048
     Dates: start: 20100309, end: 20100310
  3. MELPHALAN [Suspect]
     Dosage: 9 MICROGRAM/SQ. METER
     Route: 048
     Dates: start: 20090325, end: 20100213
  4. THALOMID [Suspect]
     Dosage: 100 MILLIGRAM
     Route: 048
     Dates: start: 20090325
  5. MELPHALAN [Suspect]
  6. PREDNISONE [Suspect]
  7. PREDNISONE [Suspect]
     Dosage: 100 MILLIGRAM
     Route: 048
     Dates: start: 20090325, end: 20100213

REACTIONS (1)
  - LYMPHOCYTIC LEUKAEMIA [None]
